FAERS Safety Report 6266947-9 (Version None)
Quarter: 2009Q3

REPORT INFORMATION
  Report Type: 
  Country: None (occurrence: None)
  Receive Date: 20090714
  Receipt Date: 20090706
  Transmission Date: 20100115
  Serious: Yes (Life-Threatening)
  Sender: FDA-Public Use
  Company Number: JP-ASTRAZENECA-2009AP01168

PATIENT
  Age: 85 Year
  Sex: Male
  Weight: 41 kg

DRUGS (7)
  1. ZOLADEX [Suspect]
     Indication: PROSTATE CANCER
     Route: 058
     Dates: start: 20080601, end: 20081201
  2. CASODEX [Suspect]
     Indication: PROSTATE CANCER
     Route: 048
     Dates: start: 20080512, end: 20090210
  3. GENINAX [Suspect]
     Indication: PNEUMONIA
     Route: 048
     Dates: start: 20090101, end: 20090210
  4. ZANTAC [Suspect]
     Indication: GASTRITIS
     Route: 048
     Dates: end: 20090210
  5. UNKNOWN [Suspect]
     Indication: ATRIAL FLUTTER
     Route: 048
     Dates: end: 20090210
  6. DASEN [Concomitant]
     Route: 048
     Dates: start: 20090207, end: 20090210
  7. NORVASC [Concomitant]
     Indication: HYPERTENSION
     Route: 048

REACTIONS (1)
  - INTERSTITIAL LUNG DISEASE [None]
